FAERS Safety Report 8831956 (Version 4)
Quarter: 2012Q4

REPORT INFORMATION
  Report Type: 
  Country: SE (occurrence: SE)
  Receive Date: 20121009
  Receipt Date: 20121113
  Transmission Date: 20130627
  Serious: Yes (Death)
  Sender: FDA-Public Use
  Company Number: SE-AMGEN-SWESP2012063672

PATIENT
  Sex: Male

DRUGS (1)
  1. NPLATE [Suspect]
     Indication: IDIOPATHIC THROMBOCYTOPENIC PURPURA
     Dosage: UNK
     Dates: start: 2011

REACTIONS (2)
  - Hepatic failure [Fatal]
  - Multimorbidity [Fatal]
